FAERS Safety Report 8836031 (Version 2)
Quarter: 2012Q4

REPORT INFORMATION
  Report Type: 
  Country: US (occurrence: US)
  Receive Date: 20121011
  Receipt Date: 20121119
  Transmission Date: 20130627
  Serious: Yes (Other)
  Sender: FDA-Public Use
  Company Number: US-PFIZER INC-2012250184

PATIENT
  Age: 46 Year
  Sex: Female
  Weight: 74.83 kg

DRUGS (4)
  1. EFFEXOR XR [Suspect]
     Indication: DEPRESSION
     Dosage: 300 mg, Daily in morning
     Route: 048
     Dates: end: 20121005
  2. EFFEXOR XR [Suspect]
     Indication: ANXIETY
  3. EFFEXOR XR [Suspect]
     Indication: PANIC DISORDER
  4. METFORMIN HYDROCHLORIDE [Concomitant]
     Indication: DIABETES
     Dosage: 1000 mg, 2x/day

REACTIONS (1)
  - Withdrawal syndrome [Not Recovered/Not Resolved]
